FAERS Safety Report 21690853 (Version 2)
Quarter: 2022Q4

REPORT INFORMATION
  Report Type: Spontaneous
  Country: HU (occurrence: HU)
  Receive Date: 20221207
  Receipt Date: 20221222
  Transmission Date: 20230113
  Serious: Yes (Hospitalization)
  Sender: FDA-Public Use
  Company Number: HU-BIOGEN-2022BI01173000

PATIENT
  Sex: Male

DRUGS (1)
  1. SPINRAZA [Suspect]
     Active Substance: NUSINERSEN
     Indication: Spinal muscular atrophy
     Dosage: 12 MG/5ML
     Route: 050

REACTIONS (8)
  - Procedural vomiting [Not Recovered/Not Resolved]
  - Post lumbar puncture syndrome [Unknown]
  - Rhinitis [Unknown]
  - Agitation [Unknown]
  - Oxygen saturation decreased [Recovered/Resolved]
  - Respiratory tract procedural complication [Recovered/Resolved]
  - Procedural pain [Unknown]
  - Bronchitis [Unknown]

NARRATIVE: CASE EVENT DATE: 20220101
